FAERS Safety Report 23367621 (Version 1)
Quarter: 2024Q1

REPORT INFORMATION
  Report Type: Spontaneous
  Country: US (occurrence: US)
  Receive Date: 20240104
  Receipt Date: 20240104
  Transmission Date: 20240410
  Serious: Yes (Other)
  Sender: FDA-Public Use
  Company Number: US-009507513-2401USA000249

PATIENT
  Sex: Male

DRUGS (2)
  1. KEYTRUDA [Suspect]
     Active Substance: PEMBROLIZUMAB
     Dosage: UNK
  2. KEYTRUDA [Suspect]
     Active Substance: PEMBROLIZUMAB
     Dosage: UNK
     Dates: start: 20231229, end: 20231229

REACTIONS (6)
  - Renal failure [Unknown]
  - Chills [Unknown]
  - Gait disturbance [Unknown]
  - Fall [Unknown]
  - Head injury [Unknown]
  - Dysstasia [Unknown]

NARRATIVE: CASE EVENT DATE: 20231229
